FAERS Safety Report 5944298-7 (Version None)
Quarter: 2008Q4

REPORT INFORMATION
  Report Type: 
  Country: None (occurrence: None)
  Receive Date: 20081105
  Receipt Date: 20081023
  Transmission Date: 20090506
  Serious: Yes (Other)
  Sender: FDA-Public Use
  Company Number: CHPA2008US18353

PATIENT
  Sex: Female

DRUGS (2)
  1. THERAFLU DAYTIME SEVERE COLD NO PSE (NCH)(PARACETAMOL, PHENYLEPHRINE) [Suspect]
     Indication: COUGH
     Dosage: 1 DF, ONCE/SINGLE, ORAL
     Route: 048
     Dates: start: 20081022, end: 20081022
  2. INSULIN (INSULIN) [Concomitant]

REACTIONS (2)
  - BLOOD GLUCOSE INCREASED [None]
  - CONCOMITANT DISEASE AGGRAVATED [None]
